FAERS Safety Report 5683820-5 (Version None)
Quarter: 2008Q1

REPORT INFORMATION
  Report Type: 
  Country: None (occurrence: None)
  Receive Date: 20080326
  Receipt Date: 20080311
  Transmission Date: 20080703
  Serious: Yes (Death)
  Sender: FDA-Public Use
  Company Number: 0810017

PATIENT
  Sex: Female
  Weight: 6.5 kg

DRUGS (4)
  1. ORFADIN [Suspect]
     Indication: TYROSINAEMIA
     Dosage: 8 MILLIGRAM A DAY ORAL
     Route: 048
     Dates: start: 20071206, end: 20080209
  2. AMPICILLIN + SUBLBACTAM [Concomitant]
  3. FUROSEMIDE [Concomitant]
  4. CEFOTAXIME [Concomitant]

REACTIONS (7)
  - ASCITES [None]
  - DISSEMINATED INTRAVASCULAR COAGULATION [None]
  - GASTROINTESTINAL HAEMORRHAGE [None]
  - HYPOALBUMINAEMIA [None]
  - HYPOVOLAEMIC SHOCK [None]
  - PERITONITIS BACTERIAL [None]
  - SEPSIS [None]
